FAERS Safety Report 7469125-0 (Version None)
Quarter: 2011Q2

REPORT INFORMATION
  Report Type: 
  Country: None (occurrence: None)
  Receive Date: 20110429
  Receipt Date: 20110421
  Transmission Date: 20111010
  Serious: Yes (Other)
  Sender: FDA-Public Use
  Company Number: LTI2011A00099

PATIENT
  Age: 71 Year
  Sex: Male

DRUGS (1)
  1. PIOGLITAZONE HYDROCHLORIDE AND METFORMIN HYDROCHLORIDE [Suspect]
     Indication: TYPE 2 DIABETES MELLITUS
     Dosage: 2 TAB. (1 TAB.,2 IN 1 D) ORAL
     Route: 048
     Dates: start: 20101001

REACTIONS (1)
  - BLADDER CANCER [None]
